FAERS Safety Report 5255987-4 (Version None)
Quarter: 2007Q1

REPORT INFORMATION
  Report Type: 
  Country: None (occurrence: None)
  Receive Date: 20070302
  Receipt Date: 20070302
  Transmission Date: 20070707
  Serious: Yes (Hospitalization)
  Sender: FDA-Public Use
  Company Number: None

PATIENT
  Age: 82 Year
  Sex: Male
  Weight: 109.3 kg

DRUGS (19)
  1. AVELOX [Suspect]
     Indication: CHRONIC OBSTRUCTIVE PULMONARY DISEASE
     Dosage: 400MG  IVPB ONCE   IV BOLUS
     Route: 040
  2. AVELOX [Suspect]
     Indication: INFECTION
     Dosage: 400MG  IVPB ONCE   IV BOLUS
     Route: 040
  3. AVELOX [Suspect]
     Indication: RESPIRATORY TRACT INFECTION
     Dosage: 400MG  IVPB ONCE   IV BOLUS
     Route: 040
  4. ATENOLOL [Concomitant]
  5. ZOLOFT [Concomitant]
  6. IMODIUM [Concomitant]
  7. IRON [Concomitant]
  8. EXELON [Concomitant]
  9. OMEPRAZOLE [Concomitant]
  10. CLARITIN [Concomitant]
  11. ATIVAN [Concomitant]
  12. MORPHINE [Concomitant]
  13. ACIPHEX [Concomitant]
  14. NORTRIPTYLINE HCL [Concomitant]
  15. LEVOTHYROXINE SODIUM [Concomitant]
  16. RISPERDAL [Concomitant]
  17. PLAVIX [Concomitant]
  18. HALDOL [Concomitant]
  19. ARICEPT [Concomitant]

REACTIONS (7)
  - CHRONIC OBSTRUCTIVE PULMONARY DISEASE [None]
  - DRUG HYPERSENSITIVITY [None]
  - DYSPNOEA [None]
  - INFUSION SITE ERYTHEMA [None]
  - INFUSION SITE SWELLING [None]
  - LOCAL SWELLING [None]
  - RASH [None]
